FAERS Safety Report 22182172 (Version 3)
Quarter: 2023Q2

REPORT INFORMATION
  Report Type: Report from Study
  Country: US (occurrence: US)
  Receive Date: 20230406
  Receipt Date: 20230612
  Transmission Date: 20230722
  Serious: Yes (Hospitalization, Other)
  Sender: FDA-Public Use
  Company Number: US-002147023-NVSC2023US076577

PATIENT
  Age: 70 Year
  Sex: Female

DRUGS (2)
  1. ENTRESTO [Suspect]
     Active Substance: SACUBITRIL\VALSARTAN
     Indication: Product used for unknown indication
     Dosage: 1 DOSAGE FORM, BID (PATIENT WAS ADAMANT THAT SHE HAD BEEN TAKING ENTRESTO FOR 15 YEAR)
     Route: 048
  2. ELIQUIS [Suspect]
     Active Substance: APIXABAN
     Indication: Product used for unknown indication
     Dosage: UNK
     Route: 065

REACTIONS (15)
  - Sepsis [Recovering/Resolving]
  - Nephrolithiasis [Unknown]
  - Escherichia infection [Unknown]
  - Urinary tract infection [Unknown]
  - Ejection fraction decreased [Unknown]
  - Arrhythmia [Unknown]
  - Diverticulitis [Unknown]
  - Cardiomyopathy [Unknown]
  - Nocturnal dyspnoea [Unknown]
  - Insomnia [Unknown]
  - Hyperhidrosis [Unknown]
  - Crying [Unknown]
  - Stress [Unknown]
  - Expired product administered [Unknown]
  - Product use issue [Unknown]

NARRATIVE: CASE EVENT DATE: 20221101
